FAERS Safety Report 15181285 (Version 1)
Quarter: 2018Q3

REPORT INFORMATION
  Report Type: Spontaneous
  Country: US (occurrence: US)
  Receive Date: 20180723
  Receipt Date: 20180723
  Transmission Date: 20181010
  Serious: No
  Sender: FDA-Public Use
  Company Number: US-SA-2018SA192283

PATIENT
  Age: 18 Year
  Sex: Male

DRUGS (2)
  1. TUBERSOL [Suspect]
     Active Substance: TUBERCULIN PURIFIED PROTEIN DERIVATIVE
     Dosage: 0.1 ML
     Route: 023
     Dates: start: 20180609, end: 20180609
  2. TUBERSOL [Suspect]
     Active Substance: TUBERCULIN PURIFIED PROTEIN DERIVATIVE
     Indication: TUBERCULIN TEST
     Dosage: 0.1 ML
     Route: 023
     Dates: start: 20180605, end: 20180605

REACTIONS (1)
  - Inappropriate schedule of drug administration [Unknown]
